FAERS Safety Report 21285277 (Version 1)
Quarter: 2022Q3

REPORT INFORMATION
  Report Type: Spontaneous
  Country: US (occurrence: US)
  Receive Date: 20220902
  Receipt Date: 20220902
  Transmission Date: 20221026
  Serious: No
  Sender: FDA-Public Use
  Company Number: US-HORIZON THERAPEUTICS-HZN-2022-000053

PATIENT
  Sex: Male

DRUGS (1)
  1. PROCYSBI [Suspect]
     Active Substance: CYSTEAMINE BITARTRATE
     Indication: Cystinosis
     Dosage: 750 MG, BID
     Route: 065

REACTIONS (3)
  - X-ray abnormal [Recovered/Resolved]
  - Foreign body in gastrointestinal tract [Recovered/Resolved]
  - Scoliosis [Recovered/Resolved]
